FAERS Safety Report 8789138 (Version 1)
Quarter: 2012Q4

REPORT INFORMATION
  Report Type: Spontaneous
  Country: US (occurrence: None)
  Receive Date: 20120910
  Receipt Date: 20120910
  Transmission Date: 20130627
  Serious: Yes (Life-Threatening, Other)
  Sender: FDA-Public Use
  Company Number: None

PATIENT
  Sex: Male
  Weight: 113.4 kg

DRUGS (1)
  1. CRESTOR [Suspect]
     Indication: HIGH CHOLESTEROL
     Route: 048
     Dates: start: 2007, end: 20120410

REACTIONS (3)
  - Blood glucose increased [None]
  - Muscle spasms [None]
  - Glycosylated haemoglobin decreased [None]
